FAERS Safety Report 16862787 (Version 4)
Quarter: 2021Q4

REPORT INFORMATION
  Report Type: Spontaneous
  Country: US (occurrence: US)
  Receive Date: 20190927
  Receipt Date: 20211008
  Transmission Date: 20220303
  Serious: Yes (Hospitalization, Other)
  Sender: FDA-Public Use
  Company Number: US-GILEAD-2019-0429688

PATIENT
  Age: 47 Year
  Sex: Male
  Weight: 65.31 kg

DRUGS (54)
  1. ATRIPLA [Suspect]
     Active Substance: EFAVIRENZ\EMTRICITABINE\TENOFOVIR DISOPROXIL FUMARATE
     Indication: HIV infection
     Dosage: UNK
     Route: 048
     Dates: start: 2008, end: 2016
  2. ATRIPLA [Suspect]
     Active Substance: EFAVIRENZ\EMTRICITABINE\TENOFOVIR DISOPROXIL FUMARATE
     Dosage: UNK
     Route: 048
     Dates: start: 2008, end: 201507
  3. BIKTARVY [Concomitant]
     Active Substance: BICTEGRAVIR SODIUM\EMTRICITABINE\TENOFOVIR ALAFENAMIDE FUMARATE
  4. EPIVIR [Concomitant]
     Active Substance: LAMIVUDINE
  5. TIVICAY [Concomitant]
     Active Substance: DOLUTEGRAVIR SODIUM
  6. CIPROFLOXACIN [Concomitant]
     Active Substance: CIPROFLOXACIN
  7. METHYLPREDNISOLONE [Concomitant]
     Active Substance: METHYLPREDNISOLONE
  8. ZOLPIDEM [Concomitant]
     Active Substance: ZOLPIDEM TARTRATE
  9. HYDROMORPHONE [Concomitant]
     Active Substance: HYDROMORPHONE
  10. LORAZEPAM [Concomitant]
     Active Substance: LORAZEPAM
  11. PREDNISONE [Concomitant]
     Active Substance: PREDNISONE
  12. KLOR-CON [Concomitant]
     Active Substance: POTASSIUM CHLORIDE
  13. ZOFRAN [Concomitant]
     Active Substance: ONDANSETRON HYDROCHLORIDE
  14. CYCLOBENZAPRINE [Concomitant]
     Active Substance: CYCLOBENZAPRINE
  15. ACIPHEX [Concomitant]
     Active Substance: RABEPRAZOLE SODIUM
  16. LIVALO [Concomitant]
     Active Substance: PITAVASTATIN CALCIUM
  17. DANAZOL [Concomitant]
     Active Substance: DANAZOL
  18. AMITIZA [Concomitant]
     Active Substance: LUBIPROSTONE
  19. FLUCONAZOLE [Concomitant]
     Active Substance: FLUCONAZOLE
  20. HYDROXYUREA [Concomitant]
     Active Substance: HYDROXYUREA
  21. CHLORPROMAZINE [Concomitant]
     Active Substance: CHLORPROMAZINE
  22. VENLAFAXINE [Concomitant]
     Active Substance: VENLAFAXINE HYDROCHLORIDE
  23. HYDROXYZINE [Concomitant]
     Active Substance: HYDROXYZINE HYDROCHLORIDE
  24. EPINEPHRINE [Concomitant]
     Active Substance: EPINEPHRINE
  25. MONTELUKAST [Concomitant]
     Active Substance: MONTELUKAST SODIUM
  26. HYDROCHLOROTHIAZIDE [Concomitant]
     Active Substance: HYDROCHLOROTHIAZIDE
  27. PROMETHAZINE [Concomitant]
     Active Substance: PROMETHAZINE HYDROCHLORIDE
  28. POTASSIUM [Concomitant]
     Active Substance: POTASSIUM
  29. PANTOPRAZOLE [Concomitant]
     Active Substance: PANTOPRAZOLE
  30. SODIUM BICARBONATE [Concomitant]
     Active Substance: SODIUM BICARBONATE
  31. METOPROLOL [Concomitant]
     Active Substance: METOPROLOL
  32. OMNARIS [Concomitant]
     Active Substance: CICLESONIDE
  33. VENTOLIN [Concomitant]
     Active Substance: ALBUTEROL SULFATE
  34. BREO ELLIPTA [Concomitant]
     Active Substance: FLUTICASONE FUROATE\VILANTEROL TRIFENATATE
  35. CLINDAMYCIN [Concomitant]
     Active Substance: CLINDAMYCIN
  36. KETOCONAZOLE [Concomitant]
     Active Substance: KETOCONAZOLE
  37. TRAMADOL [Concomitant]
     Active Substance: TRAMADOL
  38. FENTANYL [Concomitant]
     Active Substance: FENTANYL
  39. OXYCODONE [Concomitant]
     Active Substance: OXYCODONE
  40. DEXAMETHASONE [Concomitant]
     Active Substance: DEXAMETHASONE
  41. VITAMIN D2 [Concomitant]
     Active Substance: ERGOCALCIFEROL
  42. VALACYCLOVIR HYDROCHLORIDE [Concomitant]
     Active Substance: VALACYCLOVIR HYDROCHLORIDE
  43. MOMETASONE [Concomitant]
     Active Substance: MOMETASONE
  44. PROCHLORPERAZINE [Concomitant]
     Active Substance: PROCHLORPERAZINE
  45. MIDODRINE [Concomitant]
     Active Substance: MIDODRINE
  46. ROPINIROLE [Concomitant]
     Active Substance: ROPINIROLE
  47. DIAZEPAM [Concomitant]
     Active Substance: DIAZEPAM
  48. OVARELL [Concomitant]
  49. SYMBICORT [Concomitant]
     Active Substance: BUDESONIDE\FORMOTEROL FUMARATE DIHYDRATE
  50. NADOLOL [Concomitant]
     Active Substance: NADOLOL
  51. ZYRTEC [Concomitant]
     Active Substance: CETIRIZINE HYDROCHLORIDE
  52. EFFEXOR [Concomitant]
     Active Substance: VENLAFAXINE HYDROCHLORIDE
  53. ABACAVIR [Concomitant]
     Active Substance: ABACAVIR
  54. GRANISETRON [Concomitant]
     Active Substance: GRANISETRON

REACTIONS (16)
  - End stage renal disease [Recovered/Resolved]
  - Chronic kidney disease [Recovered/Resolved]
  - Acute kidney injury [Recovered/Resolved]
  - Fanconi syndrome acquired [Recovered/Resolved]
  - Renal tubular necrosis [Recovered/Resolved]
  - Loss of personal independence in daily activities [Not Recovered/Not Resolved]
  - Impaired work ability [Not Recovered/Not Resolved]
  - Quality of life decreased [Not Recovered/Not Resolved]
  - Decreased activity [Not Recovered/Not Resolved]
  - Economic problem [Not Recovered/Not Resolved]
  - Anhedonia [Not Recovered/Not Resolved]
  - Emotional distress [Not Recovered/Not Resolved]
  - Anxiety [Not Recovered/Not Resolved]
  - Pain [Not Recovered/Not Resolved]
  - Hypokalaemia [Recovered/Resolved]
  - Metabolic acidosis [Recovered/Resolved]

NARRATIVE: CASE EVENT DATE: 20150801
